FAERS Safety Report 9704974 (Version 2)
Quarter: 2013Q4

REPORT INFORMATION
  Report Type: Spontaneous
  Country: US (occurrence: US)
  Receive Date: 20131122
  Receipt Date: 20131201
  Transmission Date: 20140711
  Serious: No
  Sender: FDA-Public Use
  Company Number: US-ABBVIE-13P-163-1138528-00

PATIENT
  Sex: Male
  Weight: 92.62 kg

DRUGS (3)
  1. ANDROGEL [Suspect]
     Indication: BLOOD TESTOSTERONE DECREASED
     Dosage: 40.5 MILLIGRAMS DAILY
     Route: 061
     Dates: start: 2012
  2. GLYBURIDE [Concomitant]
     Indication: DIABETES MELLITUS
  3. LISINOPRIL [Concomitant]
     Indication: HYPERTENSION

REACTIONS (2)
  - Device malfunction [Unknown]
  - Breast enlargement [Not Recovered/Not Resolved]
